FAERS Safety Report 6872265-8 (Version None)
Quarter: 2010Q3

REPORT INFORMATION
  Report Type: 
  Country: None (occurrence: None)
  Receive Date: 20100723
  Receipt Date: 20100715
  Transmission Date: 20110219
  Serious: Yes (Death, Hospitalization, Other)
  Sender: FDA-Public Use
  Company Number: US-ROCHE-699923

PATIENT
  Sex: Male
  Weight: 78 kg

DRUGS (3)
  1. CAPECITABINE [Suspect]
     Dosage: FREQUENCY NOT SPECIFIED
     Route: 065
  2. GEMZAR [Suspect]
     Route: 065
  3. ARIXTRA [Suspect]
     Indication: THROMBOSIS PROPHYLAXIS
     Route: 065
     Dates: start: 20100301

REACTIONS (5)
  - DEHYDRATION [None]
  - GASTROINTESTINAL HAEMORRHAGE [None]
  - LIVER ABSCESS [None]
  - PAIN [None]
  - PULMONARY EMBOLISM [None]
